FAERS Safety Report 18568762 (Version 2)
Quarter: 2020Q4

REPORT INFORMATION
  Report Type: Report from Study
  Country: IT (occurrence: IT)
  Receive Date: 20201202
  Receipt Date: 20201222
  Transmission Date: 20210114
  Serious: Yes (Death)
  Sender: FDA-Public Use
  Company Number: NVSC2020IT319526

PATIENT
  Age: 78 Year
  Sex: Female
  Weight: 57 kg

DRUGS (1)
  1. IMATINIB. [Suspect]
     Active Substance: IMATINIB MESYLATE
     Indication: PULMONARY ARTERIAL HYPERTENSION
     Dosage: 100 MG, BID (LAST DOSE OF ADMINISTRATION WAS ON 12 DEC 2019)
     Route: 048
     Dates: start: 20140410

REACTIONS (1)
  - Post procedural complication [Fatal]

NARRATIVE: CASE EVENT DATE: 20191212
